FAERS Safety Report 20227528 (Version 1)
Quarter: 2021Q4

REPORT INFORMATION
  Report Type: Spontaneous
  Country: IN (occurrence: IN)
  Receive Date: 20211224
  Receipt Date: 20211224
  Transmission Date: 20220303
  Serious: Yes (Other)
  Sender: FDA-Public Use
  Company Number: IN-COOPERSURGICAL, INC.-IN-2021CPS003782

PATIENT
  Age: 62 Year
  Sex: Female

DRUGS (1)
  1. PARAGARD T 380A [Suspect]
     Active Substance: COPPER
     Indication: Product used for unknown indication
     Dosage: UNK
     Route: 015

REACTIONS (8)
  - Cervix carcinoma stage I [Unknown]
  - Sepsis [Recovering/Resolving]
  - Pyometra [Recovering/Resolving]
  - Uterine perforation [Unknown]
  - Device dislocation [Recovered/Resolved]
  - Vomiting [Unknown]
  - Abnormal uterine bleeding [Unknown]
  - Device use issue [Unknown]
